FAERS Safety Report 8342207-7 (Version None)
Quarter: 2012Q2

REPORT INFORMATION
  Report Type: 
  Country: None (occurrence: None)
  Receive Date: 20120507
  Receipt Date: 20120502
  Transmission Date: 20120825
  Serious: Yes (Other)
  Sender: FDA-Public Use
  Company Number: US-AMGEN-USASP2011010155

PATIENT
  Sex: Female

DRUGS (45)
  1. FENTANYL [Concomitant]
     Dosage: UNK
  2. SEROQUEL [Concomitant]
     Dosage: UNK
  3. VAGIFEM [Concomitant]
     Dosage: UNK
  4. ZOVIRAX                            /00587301/ [Concomitant]
     Dosage: UNK
  5. ALAVERT [Concomitant]
     Dosage: UNK
  6. ASPIRIN [Concomitant]
     Dosage: UNK
  7. METOCLOPRAMIDE [Concomitant]
     Dosage: UNK
  8. PREDNISONE [Concomitant]
     Dosage: 5 MG, QD
     Route: 048
  9. ALENDRONATE SODIUM [Concomitant]
     Dosage: UNK
  10. KETOROLAC TROMETHAMINE [Concomitant]
     Dosage: UNK
  11. FLUOCINONIDE [Concomitant]
     Dosage: UNK
  12. IMURAN [Concomitant]
     Dosage: 50 MG, TID
  13. IMURAN [Concomitant]
     Dosage: 75 MG, BID
  14. LORATADINE [Concomitant]
  15. DILAUDID [Concomitant]
     Dosage: UNK
  16. AMBIEN [Concomitant]
     Dosage: UNK
  17. PROTONIX [Concomitant]
     Dosage: UNK
  18. ENBREL [Suspect]
     Indication: SYSTEMIC LUPUS ERYTHEMATOSUS
  19. AZATHIOPRINE [Concomitant]
     Dosage: UNK
  20. ISORBIDE [Concomitant]
     Dosage: UNK
  21. B12                                /00056201/ [Concomitant]
     Dosage: UNK
  22. CYCLOBENZAPRINE [Concomitant]
     Dosage: UNK
  23. DESOXIMETASONE [Concomitant]
     Dosage: UNK
  24. DEXILANT [Concomitant]
     Dosage: UNK
  25. LEVOTHYROXINE SODIUM [Concomitant]
     Dosage: UNK
  26. FOLIC ACID [Concomitant]
     Dosage: 1 MG, QD
     Route: 048
  27. VITAMIN D [Concomitant]
     Dosage: UNK
  28. LYRICA [Concomitant]
     Dosage: UNK
  29. CALCIUM + VIT D [Concomitant]
     Dosage: UNK
  30. SIMVASTATIN [Concomitant]
     Dosage: UNK
  31. ALCLOMETASONE [Concomitant]
     Dosage: UNK
  32. DOVONEX [Concomitant]
     Dosage: UNK
  33. CLARITIN                           /00413701/ [Concomitant]
     Dosage: UNK
  34. TORADOL [Concomitant]
     Dosage: UNK
  35. ENBREL [Suspect]
     Indication: RHEUMATOID ARTHRITIS
     Dosage: 50 MG, QWK
     Route: 058
     Dates: start: 20080915
  36. LANSOPRAZOLE [Concomitant]
     Dosage: UNK
  37. TEKTURNA [Concomitant]
     Dosage: UNK
  38. HYDROCODONE BITARTRATE [Concomitant]
     Dosage: UNK
  39. ALPRAZOLAM [Concomitant]
     Dosage: UNK
  40. PANTOPRAZOLE [Concomitant]
  41. VITAMIN C                          /00008001/ [Concomitant]
     Dosage: UNK
  42. ENBREL [Suspect]
     Indication: PSORIASIS
  43. PROPRANOLOL [Concomitant]
     Dosage: UNK
  44. HYDROCHLOROTHIAZIDE [Concomitant]
     Dosage: UNK
  45. PATANASE [Concomitant]

REACTIONS (14)
  - MYOCARDIAL INFARCTION [None]
  - CORONARY ARTERY DISEASE [None]
  - INFLUENZA LIKE ILLNESS [None]
  - PYURIA [None]
  - CLOSTRIDIAL INFECTION [None]
  - INJECTION SITE PAIN [None]
  - RED BLOOD CELL SEDIMENTATION RATE INCREASED [None]
  - BLOOD CORTISOL DECREASED [None]
  - OEDEMA PERIPHERAL [None]
  - EXOSTOSIS [None]
  - PNEUMONITIS [None]
  - ECHOCARDIOGRAM ABNORMAL [None]
  - DYSLIPIDAEMIA [None]
  - ADRENAL INSUFFICIENCY [None]
